FAERS Safety Report 16638379 (Version 2)
Quarter: 2019Q3

REPORT INFORMATION
  Report Type: Report from Study
  Country: US (occurrence: US)
  Receive Date: 20190726
  Receipt Date: 20190807
  Transmission Date: 20191004
  Serious: Yes (Death, Hospitalization, Other)
  Sender: FDA-Public Use
  Company Number: US-GILEAD-2019-0414507

PATIENT
  Age: 77 Year
  Sex: Female
  Weight: 47.62 kg

DRUGS (6)
  1. AMLODIPINE;BENAZEPRIL HYDROCHLORIDE [Concomitant]
  2. SILDENAFIL. [Concomitant]
     Active Substance: SILDENAFIL
  3. PREMARIN [Concomitant]
     Active Substance: ESTROGENS, CONJUGATED
  4. NEXIUM I.V. [Concomitant]
     Active Substance: ESOMEPRAZOLE SODIUM
  5. AMBRISENTAN [Suspect]
     Active Substance: AMBRISENTAN
     Indication: PULMONARY ARTERIAL HYPERTENSION
     Dosage: 5 MG, QD
     Route: 065
     Dates: start: 20081016
  6. LOSARTAN POTASSSIUM [Concomitant]

REACTIONS (1)
  - Respiratory failure [Fatal]
